FAERS Safety Report 21560469 (Version 3)
Quarter: 2022Q4

REPORT INFORMATION
  Report Type: Spontaneous
  Country: BE (occurrence: BE)
  Receive Date: 20221107
  Receipt Date: 20221213
  Transmission Date: 20230113
  Serious: Yes (Other)
  Sender: FDA-Public Use
  Company Number: BE-ELI_LILLY_AND_COMPANY-BE202210012515

PATIENT
  Age: 57 Year
  Sex: Female
  Weight: 52 kg

DRUGS (6)
  1. ABEMACICLIB [Suspect]
     Active Substance: ABEMACICLIB
     Indication: Hormone receptor positive HER2 negative breast cancer
     Dosage: 150 MG, BID
     Route: 048
     Dates: start: 20220718, end: 20220822
  2. ABEMACICLIB [Suspect]
     Active Substance: ABEMACICLIB
     Dosage: 150 MG, BID
     Route: 048
     Dates: start: 20220930, end: 20221018
  3. ABEMACICLIB [Suspect]
     Active Substance: ABEMACICLIB
     Dosage: 100 MG, BID
     Route: 048
     Dates: start: 20221021, end: 20221021
  4. QUETIAPINE [Concomitant]
     Active Substance: QUETIAPINE
     Indication: Product used for unknown indication
     Dosage: 5 MG
  5. PANTOPRAZOLE [Concomitant]
     Active Substance: PANTOPRAZOLE
     Indication: Product used for unknown indication
  6. CARIPILL [Concomitant]
     Indication: Product used for unknown indication

REACTIONS (7)
  - Cardiac failure [Unknown]
  - Congestive cardiomyopathy [Unknown]
  - Chest pain [Recovered/Resolved]
  - Dyspnoea [Recovered/Resolved]
  - Bronchitis chronic [Unknown]
  - Neuralgia [Unknown]
  - Chest pain [Unknown]

NARRATIVE: CASE EVENT DATE: 20220822
